FAERS Safety Report 12042160 (Version 1)
Quarter: 2016Q1

REPORT INFORMATION
  Report Type: Spontaneous
  Country: US (occurrence: US)
  Receive Date: 20160208
  Receipt Date: 20160208
  Transmission Date: 20160526
  Serious: No
  Sender: FDA-Public Use
  Company Number: US-ACTELION PHARMACEUTICALS US, INC.-A-US2016-130956

PATIENT
  Age: 71 Year
  Sex: Male

DRUGS (3)
  1. CYCLOBENZAPRINE [Concomitant]
     Active Substance: CYCLOBENZAPRINE
     Dosage: 10 MG, UNK
  2. VALCHLOR [Suspect]
     Active Substance: MECHLORETHAMINE
     Indication: LYMPHOMA
     Dosage: UNK UNK, QD
     Route: 061
     Dates: start: 20151010
  3. HYDROCODONE/ACETAMINOPHEN [Concomitant]
     Active Substance: ACETAMINOPHEN\HYDROCODONE
     Dosage: UNK UNK, QD

REACTIONS (1)
  - Onychoclasis [Unknown]
